FAERS Safety Report 24351577 (Version 1)
Quarter: 2024Q3

REPORT INFORMATION
  Report Type: Spontaneous
  Country: US (occurrence: US)
  Receive Date: 20240923
  Receipt Date: 20240923
  Transmission Date: 20241017
  Serious: No
  Sender: TEVA
  Company Number: US-TEVA-VS-3240587

PATIENT
  Sex: Female

DRUGS (1)
  1. TRIAMTERENE AND HYDROCHLOROTHIAZIDE [Suspect]
     Active Substance: HYDROCHLOROTHIAZIDE\TRIAMTERENE
     Indication: Product used for unknown indication
     Dosage: STRENGTH: 37.5 MG / 25 MG
     Route: 065

REACTIONS (9)
  - Nausea [Unknown]
  - Headache [Unknown]
  - Allergy to chemicals [Unknown]
  - Product taste abnormal [Unknown]
  - Muscle tightness [Unknown]
  - Eructation [Unknown]
  - Hyperhidrosis [Unknown]
  - Product odour abnormal [Unknown]
  - Muscle tightness [Unknown]
